FAERS Safety Report 5408727-X (Version None)
Quarter: 2007Q3

REPORT INFORMATION
  Report Type: 
  Country: None (occurrence: None)
  Receive Date: 20070808
  Receipt Date: 20070806
  Transmission Date: 20080115
  Serious: Yes (Hospitalization)
  Sender: FDA-Public Use
  Company Number: A0668774A

PATIENT
  Age: 33 Year
  Sex: Female
  Weight: 51 kg

DRUGS (2)
  1. AEROLIN [Suspect]
     Indication: BRONCHITIS
     Route: 065
     Dates: start: 19870101
  2. AEROLIN [Concomitant]
     Dosage: 2TAB FOUR TIMES PER DAY
     Dates: start: 20070601

REACTIONS (3)
  - BRONCHITIS [None]
  - MEDICATION ERROR [None]
  - TACHYCARDIA [None]
